FAERS Safety Report 14130431 (Version 1)
Quarter: 2017Q4

REPORT INFORMATION
  Report Type: Spontaneous
  Country: US (occurrence: US)
  Receive Date: 20171026
  Receipt Date: 20171026
  Transmission Date: 20180321
  Serious: No
  Sender: FDA-Public Use
  Company Number: US-MIST-TIR-2017-0758

PATIENT
  Age: 52 Year
  Sex: Female

DRUGS (2)
  1. TIROSINT [Suspect]
     Active Substance: LEVOTHYROXINE SODIUM
     Indication: HYPOTHYROIDISM
     Route: 048
     Dates: start: 20170809
  2. TIROSINT [Suspect]
     Active Substance: LEVOTHYROXINE SODIUM
     Indication: HYPOTHYROIDISM
     Dosage: ONE 88MCG CAPSULE DAILY
     Route: 048
     Dates: start: 201706, end: 20170808

REACTIONS (4)
  - Pruritus [Not Recovered/Not Resolved]
  - Laboratory test abnormal [Unknown]
  - Drug level above therapeutic [Unknown]
  - Skin irritation [Unknown]

NARRATIVE: CASE EVENT DATE: 201706
